FAERS Safety Report 4378393-3 (Version None)
Quarter: 2004Q2

REPORT INFORMATION
  Report Type: 
  Country: None (occurrence: None)
  Receive Date: 20040609
  Receipt Date: 20040528
  Transmission Date: 20050107
  Serious: Yes (Death, Hospitalization)
  Sender: FDA-Public Use
  Company Number: HQWYE878710FEB04

PATIENT
  Age: 80 Year
  Sex: Male
  Weight: 120.45 kg

DRUGS (21)
  1. CORDARONE [Suspect]
     Indication: ATRIAL FIBRILLATION
     Dosage: 200 MG 2X PER 1 DAY, ORAL
     Route: 048
     Dates: start: 19970801
  2. POTASSIUM (POTASSIUM) [Concomitant]
  3. COUMADIN [Concomitant]
  4. LIPITOR [Concomitant]
  5. PRILOSEC [Concomitant]
  6. BUMEX [Concomitant]
  7. ZOLOFT [Concomitant]
  8. CALCIUM (CALCIUM) [Concomitant]
  9. VITAMIN C (ASCORBIC ACID) [Concomitant]
  10. ADVIL [Concomitant]
  11. ACETYLSALICYLIC ACID SRT [Concomitant]
  12. GARLIC (GARLIC) [Concomitant]
  13. VITAMIN E [Concomitant]
  14. STOOL SOFTENER (DOCUSATE SODIUM) [Concomitant]
  15. LOVENOX [Concomitant]
  16. DOPAMINE HCL [Concomitant]
  17. METHYLPREDNISOLONE [Concomitant]
  18. SULFAMETHOXAZOLE + TRIMETHOPRIM [Concomitant]
  19. LEVOFLOXACIN [Concomitant]
  20. ALBUTEROL [Concomitant]
  21. PIPERACILLIN SODIUM W/TAZOBACTAM SODIUM (PIPERACILLIN SODIUM/TAZOBACTA [Concomitant]

REACTIONS (15)
  - ALANINE AMINOTRANSFERASE INCREASED [None]
  - ASPARTATE AMINOTRANSFERASE INCREASED [None]
  - ATELECTASIS [None]
  - CARDIOMEGALY [None]
  - CHILLS [None]
  - CHRONIC OBSTRUCTIVE AIRWAYS DISEASE [None]
  - GRANULOMA [None]
  - HYPOTENSION [None]
  - INTERSTITIAL LUNG DISEASE [None]
  - PNEUMONIA [None]
  - PULMONARY OEDEMA [None]
  - PULMONARY TOXICITY [None]
  - RENAL FAILURE [None]
  - RESPIRATORY FAILURE [None]
  - SCAR [None]
